FAERS Safety Report 23081066 (Version 1)
Quarter: 2023Q4

REPORT INFORMATION
  Report Type: Report from Study
  Country: US (occurrence: US)
  Receive Date: 20231018
  Receipt Date: 20231018
  Transmission Date: 20240110
  Serious: No
  Sender: FDA-Public Use
  Company Number: US-MIRUM PHARMACEUTICALS, INC.-US-MIRM-000415

PATIENT
  Sex: Male

DRUGS (3)
  1. LIVMARLI [Suspect]
     Active Substance: MARALIXIBAT CHLORIDE
     Indication: Product used for unknown indication
     Dosage: UNK
     Route: 048
  2. LIVMARLI [Suspect]
     Active Substance: MARALIXIBAT CHLORIDE
     Dosage: UNK
     Route: 048
  3. LIVMARLI [Suspect]
     Active Substance: MARALIXIBAT CHLORIDE
     Dosage: UNK
     Route: 048

REACTIONS (5)
  - Jaundice [Unknown]
  - Pruritus [Not Recovered/Not Resolved]
  - Scratch [Unknown]
  - Product dose omission issue [Not Recovered/Not Resolved]
  - Drug ineffective [Not Recovered/Not Resolved]
